FAERS Safety Report 9197721 (Version 1)
Quarter: 2013Q1

REPORT INFORMATION
  Report Type: Spontaneous
  Country: JP (occurrence: JP)
  Receive Date: 20130328
  Receipt Date: 20130328
  Transmission Date: 20140127
  Serious: Yes (Hospitalization)
  Sender: FDA-Public Use
  Company Number: JP-EISAI INC-E2020-11998-SPO-JP

PATIENT
  Age: 84 Year
  Sex: Male

DRUGS (3)
  1. ARICEPT [Suspect]
     Indication: DEMENTIA ALZHEIMER^S TYPE
     Route: 048
     Dates: start: 20130122, end: 20130215
  2. DIART [Concomitant]
  3. URSO [Concomitant]
     Route: 048

REACTIONS (1)
  - Rhabdomyolysis [Recovering/Resolving]
